FAERS Safety Report 25138456 (Version 1)
Quarter: 2025Q1

REPORT INFORMATION
  Report Type: Spontaneous
  Country: US (occurrence: US)
  Receive Date: 20250330
  Receipt Date: 20250330
  Transmission Date: 20250408
  Serious: No
  Sender: SANOFI AVENTIS
  Company Number: US-SA-2025SA090048

PATIENT
  Sex: Female

DRUGS (19)
  1. DUPIXENT [Suspect]
     Active Substance: DUPILUMAB
     Indication: Asthma
     Dosage: 300.000MG QOW
     Route: 058
  2. ADDERALL [Concomitant]
     Active Substance: AMPHETAMINE ASPARTATE\AMPHETAMINE SULFATE\DEXTROAMPHETAMINE SACCHARATE\DEXTROAMPHETAMINE SULFATE
  3. ALBUTEROL SULFATE [Concomitant]
     Active Substance: ALBUTEROL SULFATE
  4. ASPIRIN [Concomitant]
     Active Substance: ASPIRIN
  5. BACLOFEN [Concomitant]
     Active Substance: BACLOFEN
  6. NITROGLYCERIN [Concomitant]
     Active Substance: NITROGLYCERIN
  7. OXYCODONE HYDROCHLORIDE [Concomitant]
     Active Substance: OXYCODONE HYDROCHLORIDE
  8. GEODON [Concomitant]
     Active Substance: ZIPRASIDONE HYDROCHLORIDE\ZIPRASIDONE MESYLATE
  9. ONDANSETRON [Concomitant]
     Active Substance: ONDANSETRON
  10. RANOLAZINE [Concomitant]
     Active Substance: RANOLAZINE
  11. ALBUTEROL SULFATE [Concomitant]
     Active Substance: ALBUTEROL SULFATE
  12. ALPRAZOLAM [Concomitant]
     Active Substance: ALPRAZOLAM
  13. BENZTROPINE [Concomitant]
     Active Substance: BENZTROPINE
  14. BUMETANIDE [Concomitant]
     Active Substance: BUMETANIDE
  15. DILTIAZEM HYDROCHLORIDE [Concomitant]
     Active Substance: DILTIAZEM HYDROCHLORIDE
  16. FLONASE ALLERGY RELIEF [Concomitant]
     Active Substance: FLUTICASONE PROPIONATE
  17. POTASSIUM [Concomitant]
     Active Substance: POTASSIUM
  18. ROSUVASTATIN [Concomitant]
     Active Substance: ROSUVASTATIN
  19. TRELEGY ELLIPTA [Concomitant]
     Active Substance: FLUTICASONE FUROATE\UMECLIDINIUM BROMIDE\VILANTEROL TRIFENATATE

REACTIONS (1)
  - Respiration abnormal [Recovered/Resolved]
